FAERS Safety Report 8203189-1 (Version None)
Quarter: 2012Q1

REPORT INFORMATION
  Report Type: 
  Country: None (occurrence: None)
  Receive Date: 20120312
  Receipt Date: 20120302
  Transmission Date: 20120608
  Serious: No
  Sender: FDA-Public Use
  Company Number: US-PFIZER INC-2012029589

PATIENT
  Age: 85 Year
  Sex: Female
  Weight: 44 kg

DRUGS (2)
  1. XALATAN [Suspect]
     Dosage: 1 GTT, 1X/DAY IN EACH EYE
     Route: 047
     Dates: start: 20111215, end: 20120124
  2. LATANOPROST [Suspect]

REACTIONS (7)
  - SENSATION OF HEAVINESS [None]
  - LIMB DISCOMFORT [None]
  - ERYTHEMA [None]
  - MUSCLE SPASMS [None]
  - PARAESTHESIA [None]
  - MUSCLE TIGHTNESS [None]
  - BURNING SENSATION [None]
